FAERS Safety Report 12917905 (Version 1)
Quarter: 2016Q4

REPORT INFORMATION
  Report Type: Spontaneous
  Country: FR (occurrence: FR)
  Receive Date: 20161107
  Receipt Date: 20161107
  Transmission Date: 20170207
  Serious: Yes (Hospitalization, Other)
  Sender: FDA-Public Use
  Company Number: FR-009507513-1511FRA000579

PATIENT
  Age: 92 Year
  Sex: Female

DRUGS (7)
  1. PERINDOPRIL ERBUMINE. [Suspect]
     Active Substance: PERINDOPRIL ERBUMINE
     Dosage: 2 MG, QD
     Route: 048
  2. NICORANDIL [Suspect]
     Active Substance: NICORANDIL
     Dosage: 20 MG, BID
     Route: 048
  3. IMOVANE [Concomitant]
     Active Substance: ZOPICLONE
  4. OMEPRAZOLE. [Suspect]
     Active Substance: OMEPRAZOLE
     Dosage: 20 MG, QD
     Route: 048
  5. MIXTARD HUMAN 10/90 [Concomitant]
  6. POLYETHYLENE GLYCOL 3350. [Suspect]
     Active Substance: POLYETHYLENE GLYCOL 3350
     Dosage: 2.95 G, BID
     Route: 048
  7. ZOCOR [Suspect]
     Active Substance: SIMVASTATIN
     Dosage: 20 MG, QD
     Route: 048

REACTIONS (2)
  - Hyperkalaemia [Unknown]
  - Hyponatraemia [Unknown]
